FAERS Safety Report 10251909 (Version 1)
Quarter: 2014Q2

REPORT INFORMATION
  Report Type: Spontaneous
  Country: GB (occurrence: GB)
  Receive Date: 20140623
  Receipt Date: 20140623
  Transmission Date: 20141212
  Serious: Yes (Death)
  Sender: FDA-Public Use
  Company Number: GB-ACCORD-024261

PATIENT
  Age: 76 Year
  Sex: Female
  Weight: 51 kg

DRUGS (7)
  1. TRAMADOL/TRAMADOL HYDROCHLORIDE [Suspect]
     Indication: PAIN
     Dosage: 50 TO 100 MG FOUR TIMES DAILY
     Route: 048
     Dates: start: 20131109
  2. FLUOXETINE [Suspect]
     Indication: DEPRESSION
     Route: 048
     Dates: end: 20131114
  3. PARACETAMOL [Concomitant]
  4. CLOPIDOGREL [Concomitant]
  5. DALTEPARIN [Concomitant]
  6. SIMVASTATIN [Concomitant]
  7. ACETYLSALICYLIC ACID [Concomitant]

REACTIONS (2)
  - Toxicity to various agents [Not Recovered/Not Resolved]
  - Cardiopulmonary failure [Fatal]
